FAERS Safety Report 4946737-7 (Version None)
Quarter: 2006Q1

REPORT INFORMATION
  Report Type: 
  Country: None (occurrence: None)
  Receive Date: 20060317
  Receipt Date: 20050921
  Transmission Date: 20060701
  Serious: Yes (Hospitalization, Other)
  Sender: FDA-Public Use
  Company Number: US-MERCK-0509USA03097

PATIENT
  Age: 50 Year
  Sex: Female
  Weight: 68 kg

DRUGS (7)
  1. VIOXX [Suspect]
     Indication: ARTHRITIS
     Route: 048
     Dates: start: 19990831, end: 20030508
  2. VIOXX [Suspect]
     Route: 048
     Dates: start: 19990831, end: 20030508
  3. VIOXX [Suspect]
     Indication: COSTOCHONDRITIS
     Route: 048
     Dates: start: 19990831, end: 20030508
  4. VIOXX [Suspect]
     Route: 048
     Dates: start: 19990831, end: 20030508
  5. PREVACID [Concomitant]
     Route: 065
  6. ISORBID [Concomitant]
     Route: 048
  7. PREMARIN [Concomitant]
     Route: 048

REACTIONS (13)
  - ANGINA UNSTABLE [None]
  - ANXIETY [None]
  - ARTHRALGIA [None]
  - CHEST PAIN [None]
  - CORONARY ARTERY OCCLUSION [None]
  - DEPRESSION [None]
  - HYPOAESTHESIA [None]
  - MYOCARDIAL INFARCTION [None]
  - NECK PAIN [None]
  - OEDEMA PERIPHERAL [None]
  - PAIN IN EXTREMITY [None]
  - REFLUX OESOPHAGITIS [None]
  - STRESS [None]
